FAERS Safety Report 7529630-5 (Version None)
Quarter: 2011Q2

REPORT INFORMATION
  Report Type: 
  Country: None (occurrence: None)
  Receive Date: 20110607
  Receipt Date: 20100806
  Transmission Date: 20111010
  Serious: Yes (Hospitalization)
  Sender: FDA-Public Use
  Company Number: A0875821A

PATIENT
  Age: 56 Year
  Sex: Male

DRUGS (1)
  1. AVANDIA [Suspect]
     Indication: DIABETES MELLITUS
     Dosage: 4MG TWICE PER DAY
     Route: 048
     Dates: start: 20000101, end: 20050505

REACTIONS (8)
  - RENAL FAILURE ACUTE [None]
  - CORONARY ANGIOPLASTY [None]
  - CEREBROVASCULAR ACCIDENT [None]
  - DYSPNOEA [None]
  - CORONARY ARTERY BYPASS [None]
  - STENT PLACEMENT [None]
  - OXYGEN SUPPLEMENTATION [None]
  - MYOCARDIAL INFARCTION [None]
